FAERS Safety Report 9425303 (Version 1)
Quarter: 2013Q3

REPORT INFORMATION
  Report Type: Spontaneous
  Country: US (occurrence: US)
  Receive Date: 20130729
  Receipt Date: 20130729
  Transmission Date: 20140515
  Serious: Yes (Other)
  Sender: FDA-Public Use
  Company Number: US-JNJFOC-20130712408

PATIENT
  Age: 76 Year
  Sex: Male

DRUGS (10)
  1. XARELTO [Suspect]
     Indication: CEREBROVASCULAR ACCIDENT PROPHYLAXIS
     Route: 048
     Dates: start: 201203
  2. XARELTO [Suspect]
     Indication: ATRIAL FIBRILLATION
     Route: 048
     Dates: start: 201203
  3. LEVOFLOXACIN [Suspect]
     Indication: PNEUMONIA
     Route: 065
  4. METFORMIN [Concomitant]
     Indication: TYPE 2 DIABETES MELLITUS
     Route: 048
     Dates: start: 1990
  5. LISINOPRIL [Concomitant]
     Indication: HYPERTENSION
     Dosage: FOR ATLEAST 5 YEARS
     Route: 048
  6. AMLODIPINE [Concomitant]
     Indication: HYPERTENSION
     Dosage: FOR ATLEAST 2 YEARS
     Route: 048
  7. METOPROLOL [Concomitant]
     Indication: HEART RATE ABNORMAL
     Route: 048
     Dates: start: 201111
  8. PRAVASTATIN [Concomitant]
     Indication: BLOOD CHOLESTEROL ABNORMAL
     Dosage: FOR ABOUT 20 YEARS
     Route: 048
  9. MULTIVITAMINS [Concomitant]
     Route: 065
  10. ASPIRIN [Concomitant]
     Route: 065
     Dates: end: 201307

REACTIONS (11)
  - Pneumonia [Recovered/Resolved]
  - Arthritis [Not Recovered/Not Resolved]
  - Pain in extremity [Unknown]
  - Blood pressure decreased [Unknown]
  - Pain [Not Recovered/Not Resolved]
  - Weight increased [Unknown]
  - Skin discolouration [Unknown]
  - Muscle spasms [Unknown]
  - Feeling abnormal [Recovered/Resolved]
  - Abasia [Recovered/Resolved]
  - Inappropriate schedule of drug administration [Unknown]
